FAERS Safety Report 22942009 (Version 2)
Quarter: 2024Q1

REPORT INFORMATION
  Report Type: Other
  Country: CA (occurrence: None)
  Receive Date: 20230914
  Receipt Date: 20240314
  Transmission Date: 20240410
  Serious: Yes (Other)
  Sender: FDA-Public Use
  Company Number: CA-ROCHE-3300091

PATIENT
  Age: 44 Year
  Sex: Female

DRUGS (13)
  1. OCREVUS [Suspect]
     Active Substance: OCRELIZUMAB
     Indication: Relapsing-remitting multiple sclerosis
     Dosage: 300 MG AT DAY 0 AND 14, THEN 600 MG EVERY 6 MONTH - 1.2MG/ML, 600MG IV 500 ML NS
     Route: 042
     Dates: start: 20230301, end: 20230906
  2. WELLBUTRIN [Concomitant]
     Active Substance: BUPROPION HYDROCHLORIDE
  3. INVOKANA [Concomitant]
     Active Substance: CANAGLIFLOZIN
  4. AMITRIPTYLINE [Concomitant]
     Active Substance: AMITRIPTYLINE
     Dosage: DAYS 1
  5. ESCITALOPRAM [Concomitant]
     Active Substance: ESCITALOPRAM OXALATE
  6. PERINDOPRIL [Concomitant]
     Active Substance: PERINDOPRIL
     Dosage: DAYS 1 1
  7. METOPROLOL [Concomitant]
     Active Substance: METOPROLOL
  8. ESOMEPRAZOLE [Concomitant]
     Active Substance: ESOMEPRAZOLE
  9. METFORMIN [Concomitant]
     Active Substance: METFORMIN HYDROCHLORIDE
  10. CLOBETASOL [Concomitant]
     Active Substance: CLOBETASOL
  11. AMANTADINE [Concomitant]
     Active Substance: AMANTADINE
  12. DIPHENHYDRAMINE [Concomitant]
     Active Substance: DIPHENHYDRAMINE
     Route: 048
  13. IBUPROFEN [Concomitant]
     Active Substance: IBUPROFEN
     Route: 048

REACTIONS (13)
  - Multiple sclerosis relapse [Not Recovered/Not Resolved]
  - Infusion related reaction [Recovered/Resolved]
  - Asthenia [Recovering/Resolving]
  - Paraesthesia [Not Recovered/Not Resolved]
  - Fatigue [Unknown]
  - Hypoaesthesia [Recovering/Resolving]
  - Urinary tract infection [Unknown]
  - Gait disturbance [Not Recovered/Not Resolved]
  - Abdominal pain [Unknown]
  - Headache [Not Recovered/Not Resolved]
  - Balance disorder [Not Recovered/Not Resolved]
  - Infusion related reaction [Recovered/Resolved]
  - Drug ineffective [Unknown]

NARRATIVE: CASE EVENT DATE: 20230301
